FAERS Safety Report 14254394 (Version 1)
Quarter: 2017Q4

REPORT INFORMATION
  Report Type: Report from Study
  Country: GB (occurrence: GB)
  Receive Date: 20171206
  Receipt Date: 20171206
  Transmission Date: 20180321
  Serious: Yes (Hospitalization)
  Sender: FDA-Public Use
  Company Number: GB-ROCHE-1244577

PATIENT
  Age: 76 Year
  Sex: Female

DRUGS (6)
  1. RITUXIMAB. [Suspect]
     Active Substance: RITUXIMAB
     Indication: B-CELL LYMPHOMA
     Route: 042
     Dates: start: 20130423, end: 20130423
  2. CHLORPHENAMINE [Concomitant]
     Active Substance: CHLORPHENIRAMINE MALEATE
     Indication: B-CELL LYMPHOMA
     Route: 042
     Dates: start: 20130423, end: 20130423
  3. COTRIMOXAZOLE [Concomitant]
     Active Substance: SULFAMETHOXAZOLE\TRIMETHOPRIM
     Indication: B-CELL LYMPHOMA
     Dosage: M.W.F., DAY 1 TO 28
     Route: 048
     Dates: start: 20130423, end: 20130521
  4. ACICLOVIR [Concomitant]
     Active Substance: ACYCLOVIR
     Indication: B-CELL LYMPHOMA
     Dosage: DAY 1 TO 28
     Route: 048
     Dates: start: 20130423, end: 20130521
  5. PARACETAMOL [Concomitant]
     Active Substance: ACETAMINOPHEN
     Indication: B-CELL LYMPHOMA
     Route: 048
     Dates: start: 20130423, end: 20130423
  6. HYDROCORTISONE. [Concomitant]
     Active Substance: HYDROCORTISONE
     Indication: B-CELL LYMPHOMA
     Route: 042
     Dates: start: 20130423, end: 20130423

REACTIONS (3)
  - Lower respiratory tract infection [Recovered/Resolved]
  - Atrial fibrillation [Recovered/Resolved]
  - Pericardial effusion [Recovered/Resolved]

NARRATIVE: CASE EVENT DATE: 20130614
